FAERS Safety Report 6241436-6 (Version None)
Quarter: 2009Q2

REPORT INFORMATION
  Report Type: 
  Country: None (occurrence: None)
  Receive Date: 20090619
  Receipt Date: 20090619
  Transmission Date: 20091009
  Serious: No
  Sender: FDA-Public Use
  Company Number: None

PATIENT
  Age: 60 Year
  Sex: Female
  Weight: 83.9154 kg

DRUGS (2)
  1. ZICAM COLD REMEDY NASAL SWABS MATRIXX [Suspect]
     Indication: NASOPHARYNGITIS
     Dosage: ONE SWAB 1X NASAL
     Route: 045
     Dates: start: 20080508, end: 20080508
  2. ZICAM COLD REMEDY NASAL SWABS MATRIXX [Suspect]
     Indication: NASOPHARYNGITIS
     Dosage: ONE SWAB 1X NASAL
     Route: 045
     Dates: start: 20080615, end: 20080615

REACTIONS (2)
  - EPISTAXIS [None]
  - NASOPHARYNGITIS [None]
